FAERS Safety Report 15035883 (Version 1)
Quarter: 2018Q2

REPORT INFORMATION
  Report Type: Spontaneous
  Country: US (occurrence: US)
  Receive Date: 20180530
  Receipt Date: 20180530
  Transmission Date: 20180711
  Serious: Yes (Hospitalization, Other)
  Sender: FDA-Public Use
  Company Number: None

PATIENT
  Age: 44 Year
  Sex: Male

DRUGS (1)
  1. SUTENT [Suspect]
     Active Substance: SUNITINIB MALATE
     Route: 048
     Dates: start: 20180117, end: 20180529

REACTIONS (2)
  - Palmar-plantar erythrodysaesthesia syndrome [None]
  - Intestinal stenosis [None]

NARRATIVE: CASE EVENT DATE: 20180428
